FAERS Safety Report 8368243-2 (Version None)
Quarter: 2012Q2

REPORT INFORMATION
  Report Type: 
  Country: None (occurrence: None)
  Receive Date: 20120517
  Receipt Date: 20120509
  Transmission Date: 20120825
  Serious: Yes (Other)
  Sender: FDA-Public Use
  Company Number: JP-MERCK-1205USA02249

PATIENT
  Age: 60 Year
  Sex: Male

DRUGS (6)
  1. DOXORUBICIN HYDROCHLORIDE [Suspect]
     Route: 042
  2. RANIMUSTINE [Suspect]
     Route: 042
  3. MELPHALAN [Suspect]
     Route: 065
  4. INTERFERON ALFA-2B [Suspect]
     Route: 042
  5. DECADRON [Suspect]
     Indication: MULTIPLE MYELOMA
     Route: 065
  6. VINCRISTINE SULFATE [Suspect]
     Route: 042

REACTIONS (1)
  - OESOPHAGEAL CARCINOMA [None]
